FAERS Safety Report 4622854-6 (Version None)
Quarter: 2005Q1

REPORT INFORMATION
  Report Type: 
  Country: None (occurrence: None)
  Receive Date: 20050330
  Receipt Date: 20050317
  Transmission Date: 20050727
  Serious: Yes (Other)
  Sender: FDA-Public Use
  Company Number: TR-GLAXOSMITHKLINE-B0375006A

PATIENT
  Age: 31 Year
  Sex: Female

DRUGS (4)
  1. TRIFLUOPERAZINE HYDROCHLORIDE [Suspect]
     Route: 065
  2. MIRTAZAPINE [Suspect]
     Dosage: 30MG PER DAY
     Route: 065
  3. ALPRAZOLAM [Suspect]
     Route: 065
  4. DIAZEPAM [Suspect]
     Route: 065

REACTIONS (2)
  - ABORTION SPONTANEOUS [None]
  - DRUG EXPOSURE DURING PREGNANCY [None]
